FAERS Safety Report 15313793 (Version 2)
Quarter: 2018Q3

REPORT INFORMATION
  Report Type: Spontaneous
  Country: US (occurrence: US)
  Receive Date: 20180824
  Receipt Date: 20180912
  Transmission Date: 20181010
  Serious: No
  Sender: FDA-Public Use
  Company Number: US-BRISTOL-MYERS SQUIBB COMPANY-BMS-2018-078234

PATIENT
  Age: 57 Year
  Sex: Female

DRUGS (2)
  1. KENALOG?40 [Suspect]
     Active Substance: TRIAMCINOLONE ACETONIDE
     Indication: CHALAZION
     Dosage: 2 ML, UNK
     Route: 065
  2. KENALOG?40 [Suspect]
     Active Substance: TRIAMCINOLONE ACETONIDE
     Indication: CHALAZION
     Route: 065

REACTIONS (3)
  - Skin mass [Recovered/Resolved]
  - Product use in unapproved indication [Unknown]
  - Product deposit [Recovered/Resolved]
